FAERS Safety Report 23627155 (Version 1)
Quarter: 2024Q1

REPORT INFORMATION
  Report Type: Report from Study
  Country: ZA (occurrence: ZA)
  Receive Date: 20240313
  Receipt Date: 20240313
  Transmission Date: 20240410
  Serious: Yes (Hospitalization)
  Sender: FDA-Public Use
  Company Number: ZA-ABBOTT-2024A-1378721

PATIENT
  Age: 71 Year
  Sex: Female

DRUGS (7)
  1. FENOFIBRATE [Suspect]
     Active Substance: FENOFIBRATE
     Indication: Blood cholesterol
     Route: 048
  2. GLUCOPHAGE [Concomitant]
     Active Substance: METFORMIN HYDROCHLORIDE
     Indication: Diabetes mellitus
     Dosage: 1000 MG TAKE ONE TREE DAILY
  3. Adco Zolpidem Hemitatrate [Concomitant]
     Indication: Sleep disorder
     Dosage: AT NIGHT
     Route: 048
  4. EZETIMIBE\SIMVASTATIN [Concomitant]
     Active Substance: EZETIMIBE\SIMVASTATIN
     Indication: Blood cholesterol
     Dosage: INEGY (EZETIMIBE AND SIMVASTATIN) 10/10 MG?TAKE ONE TABLET DAILY
     Route: 048
  5. Peploc [Concomitant]
     Indication: Ulcer
     Dosage: IN THE MORNING
     Route: 048
  6. FLUOXETINE HYDROCHLORIDE [Concomitant]
     Active Substance: FLUOXETINE HYDROCHLORIDE
     Indication: Depression
     Route: 048
  7. HYDROCHLOROTHIAZIDE\VALSARTAN [Concomitant]
     Active Substance: HYDROCHLOROTHIAZIDE\VALSARTAN
     Indication: Hypertension
     Dosage: CO-ZOMEVEK (VALSARTAN) 80/12.5 MG?TAKE ONE TABLET DAILY
     Route: 048

REACTIONS (2)
  - Fluid retention [Unknown]
  - Renal disorder [Unknown]
